FAERS Safety Report 6649373-X (Version None)
Quarter: 2010Q1

REPORT INFORMATION
  Report Type: 
  Country: None (occurrence: None)
  Receive Date: 20100324
  Receipt Date: 20100316
  Transmission Date: 20100710
  Serious: Yes (Other)
  Sender: FDA-Public Use
  Company Number: JP-PFIZER INC-2010022910

PATIENT
  Age: 79 Year
  Sex: Female

DRUGS (2)
  1. CADUET [Suspect]
     Dosage: ONE TABLET DAILY
     Route: 048
     Dates: start: 20091209, end: 20100112
  2. MAGNESIUM OXIDE [Concomitant]
     Dosage: UNK
     Route: 048

REACTIONS (1)
  - GAMMA-GLUTAMYLTRANSFERASE ABNORMAL [None]
